FAERS Safety Report 8506764 (Version 17)
Quarter: 2013Q2

REPORT INFORMATION
  Report Type: Spontaneous
  Country: CA (occurrence: CA)
  Receive Date: 20120412
  Receipt Date: 20130529
  Transmission Date: 20140414
  Serious: Yes (Other)
  Sender: FDA-Public Use
  Company Number: CA-ROCHE-1057882

PATIENT
  Age: 20 Year
  Sex: Female

DRUGS (8)
  1. XOLAIR [Suspect]
     Indication: ASTHMA
     Route: 058
     Dates: start: 20120113
  2. XOLAIR [Suspect]
     Route: 058
     Dates: start: 20120319
  3. XOLAIR [Suspect]
     Route: 058
     Dates: start: 20120601
  4. XOLAIR [Suspect]
     Route: 058
     Dates: start: 20130212
  5. XOLAIR [Suspect]
     Route: 065
     Dates: end: 20130522
  6. ADVAIR [Concomitant]
  7. VENTOLIN [Concomitant]
  8. NASONEX [Concomitant]

REACTIONS (21)
  - Obstructive airways disorder [Unknown]
  - Orthostatic hypotension [Unknown]
  - Blood pressure abnormal [Unknown]
  - Ear pain [Unknown]
  - Injection site pain [Unknown]
  - Hypersensitivity [Unknown]
  - Asthma [Recovering/Resolving]
  - Drug ineffective [Unknown]
  - Nasopharyngitis [Recovered/Resolved]
  - Upper-airway cough syndrome [Unknown]
  - Cough [Unknown]
  - Sputum discoloured [Unknown]
  - Rhinorrhoea [Unknown]
  - Oropharyngeal pain [Unknown]
  - Influenza [Recovered/Resolved]
  - Nasopharyngitis [Unknown]
  - Heart rate increased [Unknown]
  - Rectal haemorrhage [Recovered/Resolved]
  - Abdominal pain lower [Unknown]
  - Blood glucose decreased [Unknown]
  - Proctalgia [Unknown]
